FAERS Safety Report 9009208 (Version 1)
Quarter: 2013Q1

REPORT INFORMATION
  Report Type: Spontaneous
  Country: DE (occurrence: DE)
  Receive Date: 20130111
  Receipt Date: 20130111
  Transmission Date: 20140127
  Serious: Yes (Hospitalization)
  Sender: FDA-Public Use
  Company Number: DE-TEVA-378385GER

PATIENT
  Age: 6 Decade
  Sex: Female

DRUGS (1)
  1. CLOZAPINE [Suspect]
     Dosage: 100 MILLIGRAM DAILY;

REACTIONS (3)
  - Cerebrovascular accident [Unknown]
  - VIIth nerve paralysis [Unknown]
  - Accidental exposure to product [Unknown]
